FAERS Safety Report 25114157 (Version 1)
Quarter: 2025Q1

REPORT INFORMATION
  Report Type: Report from Study
  Country: IT (occurrence: IT)
  Receive Date: 20250324
  Receipt Date: 20250324
  Transmission Date: 20250408
  Serious: Yes (Hospitalization)
  Sender: NOVARTIS
  Company Number: IT-002147023-NVSC2025IT047482

PATIENT
  Age: 14 Year
  Sex: Male
  Weight: 29 kg

DRUGS (1)
  1. MEKINIST [Suspect]
     Active Substance: TRAMETINIB DIMETHYL SULFOXIDE
     Indication: Glioma
     Route: 048
     Dates: start: 20240202, end: 20250318

REACTIONS (8)
  - Skin toxicity [Not Recovered/Not Resolved]
  - Decubitus ulcer [Unknown]
  - Ulcer haemorrhage [Unknown]
  - Purulent discharge [Unknown]
  - Pyrexia [Recovered/Resolved]
  - Inflammatory marker increased [Unknown]
  - Nitrite urine [Unknown]
  - Diarrhoea [Unknown]

NARRATIVE: CASE EVENT DATE: 20250314
